FAERS Safety Report 5025993-3 (Version None)
Quarter: 2006Q2

REPORT INFORMATION
  Report Type: 
  Country: None (occurrence: None)
  Receive Date: 20060427
  Receipt Date: 20051024
  Transmission Date: 20061013
  Serious: Yes (Other)
  Sender: FDA-Public Use
  Company Number: 2005145850

PATIENT
  Age: 6 Year
  Sex: Male
  Weight: 19.9583 kg

DRUGS (3)
  1. ZITHROMAX [Suspect]
     Indication: PHARYNGITIS STREPTOCOCCAL
     Dosage: 240 MG (240 MG, EVERY DAY), ORAL
     Route: 048
     Dates: start: 20051022
  2. CHILDREN'S MOTRIN [Suspect]
     Indication: PYREXIA
     Dosage: 150 MG
     Dates: start: 20051022
  3. HUMALOG [Concomitant]

REACTIONS (1)
  - BLOOD GLUCOSE INCREASED [None]
